FAERS Safety Report 6566535-0 (Version None)
Quarter: 2010Q1

REPORT INFORMATION
  Report Type: 
  Country: None (occurrence: None)
  Receive Date: 20100202
  Receipt Date: 20100120
  Transmission Date: 20100710
  Serious: Yes (Hospitalization, Other)
  Sender: FDA-Public Use
  Company Number: PHBS2007JP13324

PATIENT
  Age: 23 Year
  Sex: Male
  Weight: 64 kg

DRUGS (23)
  1. CYCLOSPORINE [Suspect]
  2. CERTICAN [Suspect]
     Indication: HEART TRANSPLANT
     Dosage: 1.5 MG/D
     Route: 048
     Dates: start: 20070514, end: 20070516
  3. CERTICAN [Suspect]
     Dosage: 1.75 MG/D
     Route: 048
     Dates: start: 20070517, end: 20070522
  4. CERTICAN [Suspect]
     Dosage: 2 MG/D
     Route: 048
     Dates: start: 20070523, end: 20070528
  5. CERTICAN [Suspect]
     Dosage: 2.5 MG/D
     Route: 048
     Dates: start: 20070529, end: 20070604
  6. CERTICAN [Suspect]
     Dosage: 2 MG/D
     Route: 048
     Dates: start: 20070605, end: 20070611
  7. CERTICAN [Suspect]
     Dosage: 1.5 MG/D
     Route: 048
     Dates: start: 20070612, end: 20070703
  8. CERTICAN [Suspect]
     Dosage: 2 MG/D
     Route: 048
     Dates: start: 20070704
  9. PROGRAF [Concomitant]
     Indication: HEART TRANSPLANT
     Dosage: 5.7 MG/D
  10. BUFFERIN [Concomitant]
  11. NORVASC [Concomitant]
  12. SLOW-K [Concomitant]
  13. PRAVASTATIN [Concomitant]
  14. OMEPRAL [Concomitant]
  15. JUVELA [Concomitant]
  16. ENALAPRIL MALEATE [Concomitant]
  17. BAKTAR [Concomitant]
  18. BONALON [Concomitant]
  19. DOGMATYL [Concomitant]
  20. POLARAMINE [Concomitant]
  21. TRANILAST [Concomitant]
  22. ZADITEN [Concomitant]
  23. MYCOPHENOLATE MOFETIL [Concomitant]

REACTIONS (8)
  - APHTHOUS STOMATITIS [None]
  - CONCOMITANT DISEASE AGGRAVATED [None]
  - CORONARY ARTERY DISEASE [None]
  - DIARRHOEA INFECTIOUS [None]
  - EATING DISORDER [None]
  - IMMUNOSUPPRESSANT DRUG LEVEL INCREASED [None]
  - PAIN [None]
  - STOMATITIS [None]
